FAERS Safety Report 24943624 (Version 1)
Quarter: 2025Q1

REPORT INFORMATION
  Report Type: Spontaneous
  Country: US (occurrence: US)
  Receive Date: 20250207
  Receipt Date: 20250207
  Transmission Date: 20250408
  Serious: No
  Sender: MILLICENT HOLDINGS
  Company Number: US-Millicent Holdings Ltd.-MILL20250047

PATIENT
  Sex: Female

DRUGS (14)
  1. INTRAROSA [Suspect]
     Active Substance: PRASTERONE
     Indication: Product used for unknown indication
     Route: 067
     Dates: start: 2024, end: 2024
  2. INTRAROSA [Suspect]
     Active Substance: PRASTERONE
     Route: 067
     Dates: start: 20241217, end: 202412
  3. Verisol Collagen [Concomitant]
     Indication: Supplementation therapy
  4. Zena Super Greens Powder [Concomitant]
     Indication: Supplementation therapy
  5. Viviscal hair growth supplement [Concomitant]
     Indication: Supplementation therapy
  6. VITAMIN D1 [Concomitant]
     Indication: Vitamin supplementation
  7. VITAMINS NOS [Concomitant]
     Active Substance: VITAMINS
     Indication: Vitamin supplementation
  8. hair, skin and nails supplement [Concomitant]
     Indication: Supplementation therapy
  9. magnesium_ [Concomitant]
     Indication: Mineral supplementation
  10. FISH OIL [Concomitant]
     Active Substance: FISH OIL
     Indication: Supplementation therapy
  11. PROGESTERONE [Concomitant]
     Active Substance: PROGESTERONE
     Route: 048
  12. ESTRADIOLO [Concomitant]
  13. testosterone_ [Concomitant]
  14. ADEMETIONINE [Concomitant]
     Active Substance: ADEMETIONINE
     Indication: Arthritis

REACTIONS (3)
  - Acne cystic [Recovering/Resolving]
  - Pain of skin [Recovering/Resolving]
  - Wrong technique in product usage process [Unknown]

NARRATIVE: CASE EVENT DATE: 20240101
